FAERS Safety Report 8534047-0 (Version None)
Quarter: 2012Q3

REPORT INFORMATION
  Report Type: 
  Country: None (occurrence: None)
  Receive Date: 20120724
  Receipt Date: 20120719
  Transmission Date: 20120928
  Serious: Yes (Hospitalization, Other)
  Sender: FDA-Public Use
  Company Number: BR-ROCHE-669185

PATIENT
  Sex: Female
  Weight: 70 kg

DRUGS (33)
  1. MABTHERA [Suspect]
     Route: 042
     Dates: start: 20100601, end: 20120601
  2. HYDROXYCHLOROQUINE SULFATE [Concomitant]
  3. CAFFEINE CITRATE [Concomitant]
     Indication: PAIN
  4. SENE [Concomitant]
  5. CASSIA FISTULA [Concomitant]
     Indication: CONSTIPATION
     Dosage: DOSE: 1-2 CAPS, TAKEN DAILY
     Route: 048
  6. CHLOROQUINE HYDROCHLORIDE [Concomitant]
  7. CORTICOSTEROID NOS [Concomitant]
  8. TRAMADOL HYDROCHLORIDE [Concomitant]
     Indication: HEADACHE
  9. FLUNAZOL [Concomitant]
     Indication: HYPERSENSITIVITY
  10. TOPIRAMATE [Concomitant]
     Dosage: RECEIVED 3 TIMES AT NIGHT
  11. TOPIRAMATE [Concomitant]
  12. TAMARINDUS INDICA [Concomitant]
     Indication: CONSTIPATION
     Dosage: DOSE: 1-2 CAPS, TAKEN DAILY
     Route: 048
  13. DIPYRONE [Concomitant]
     Indication: PAIN
     Dosage: AS NEEDED
  14. MABTHERA [Suspect]
     Dosage: DOSE: 1000 MG/ML
     Route: 042
     Dates: start: 20090601, end: 20090601
  15. NAPROXEN [Concomitant]
     Indication: HEADACHE
  16. FLUOXETINE HCL [Concomitant]
  17. MABTHERA [Suspect]
     Dosage: DOSE: 1000 MG/ML, 1 INFUSION
     Route: 042
     Dates: start: 20100430, end: 20100516
  18. PHENOBARBITAL TAB [Concomitant]
  19. AZATHIOPRINE [Concomitant]
  20. PREDNISONE [Concomitant]
  21. PREDNISONE [Concomitant]
  22. NEOZINE [Concomitant]
  23. FRUSEMIDE [Concomitant]
  24. CORIANDRUM SATIVUM [Concomitant]
     Indication: CONSTIPATION
     Dosage: DOSE: 1-2 CAPS, TAKEN DAILY
     Route: 048
  25. CAFFEINE CITRATE [Concomitant]
     Indication: HEADACHE
     Dosage: AS NEEDED
  26. MIOSAN [Concomitant]
     Indication: HEADACHE
  27. SENNA-MINT WAF [Concomitant]
     Indication: CONSTIPATION
     Dosage: DOSE: 1-2 CAPS, TAKEN DAILY
     Route: 048
  28. CLONAZEPAM [Concomitant]
  29. PHENOBARBITAL TAB [Concomitant]
  30. MABTHERA [Suspect]
     Indication: SYSTEMIC LUPUS ERYTHEMATOSUS
     Dosage: DOSE: 1000 MG/ML. THIRD CYCLE: 1 INFUSION EVERY 15 DAYS, FORM INFUSION
     Route: 042
     Dates: start: 20080711, end: 20081001
  31. CITALOPRAM [Concomitant]
     Indication: DEPRESSION
  32. CLONAZEPAM [Concomitant]
  33. PANTOPRAZOLE [Concomitant]

REACTIONS (19)
  - DEPRESSION [None]
  - TEMPOROMANDIBULAR JOINT SYNDROME [None]
  - URINARY TRACT INFECTION [None]
  - PAIN [None]
  - ARTHRALGIA [None]
  - CONVULSION [None]
  - NAUSEA [None]
  - THERAPEUTIC RESPONSE DECREASED [None]
  - NECK PAIN [None]
  - PSYCHIATRIC SYMPTOM [None]
  - DIPLOPIA [None]
  - HYDROCEPHALUS [None]
  - ALOPECIA [None]
  - ERYTHEMA [None]
  - HEADACHE [None]
  - ILL-DEFINED DISORDER [None]
  - OEDEMA PERIPHERAL [None]
  - WEIGHT DECREASED [None]
  - MALAISE [None]
